FAERS Safety Report 9558333 (Version 2)
Quarter: 2014Q2

REPORT INFORMATION
  Report Type: Spontaneous
  Country: US (occurrence: US)
  Receive Date: 20130926
  Receipt Date: 20140518
  Transmission Date: 20141212
  Serious: Yes (Death, Hospitalization, Other)
  Sender: FDA-Public Use
  Company Number: US-009507513-1309USA012029

PATIENT
  Sex: Female
  Weight: 72.56 kg

DRUGS (3)
  1. JANUVIA [Suspect]
     Indication: TYPE 2 DIABETES MELLITUS
     Dosage: 50 MG, UNK
     Route: 048
     Dates: start: 20110602, end: 201108
  2. ACTOS [Concomitant]
     Indication: TYPE 2 DIABETES MELLITUS
  3. METFORMIN [Concomitant]
     Indication: TYPE 2 DIABETES MELLITUS

REACTIONS (22)
  - Pancreatic carcinoma [Fatal]
  - Metastases to lung [Unknown]
  - Metastases to liver [Unknown]
  - Metastases to lymph nodes [Unknown]
  - Pulmonary mass [Unknown]
  - Pericardial effusion [Unknown]
  - Atelectasis [Unknown]
  - Pneumothorax [Unknown]
  - Pleurodesis [Unknown]
  - Lung infiltration [Unknown]
  - Dyspnoea [Recovered/Resolved with Sequelae]
  - Thrombocytopenia [Unknown]
  - Pneumonia [Unknown]
  - Oxygen saturation decreased [Unknown]
  - Renal failure acute [Unknown]
  - Left ventricular hypertrophy [Unknown]
  - Cardiomegaly [Unknown]
  - Ischaemic cardiomyopathy [Unknown]
  - Anxiety [Unknown]
  - Hypertension [Unknown]
  - Blood cholesterol increased [Unknown]
  - Coronary artery disease [Unknown]
